FAERS Safety Report 6866553-9 (Version None)
Quarter: 2010Q3

REPORT INFORMATION
  Report Type: 
  Country: None (occurrence: None)
  Receive Date: 20100722
  Receipt Date: 20100706
  Transmission Date: 20110219
  Serious: Yes (Other)
  Sender: FDA-Public Use
  Company Number: SE-PURDUE-GBR-2010-0006819

PATIENT
  Age: 66 Year
  Sex: Female

DRUGS (6)
  1. DOLCONTIN [Suspect]
     Indication: PRODUCT USED FOR UNKNOWN INDICATION
     Dosage: 60 MG, BID
     Route: 065
     Dates: start: 20100622
  2. BISOPROLOL [Concomitant]
     Dosage: UNK
  3. RAMIPRIL [Concomitant]
     Dosage: UNK
  4. IMOVANE [Concomitant]
     Dosage: UNK
  5. SYMBICORT [Concomitant]
     Dosage: UNK
  6. ALVEDON [Concomitant]
     Dosage: UNK

REACTIONS (4)
  - APHASIA [None]
  - CONFUSIONAL STATE [None]
  - MEMORY IMPAIRMENT [None]
  - SOMNOLENCE [None]
